FAERS Safety Report 8995341 (Version 3)
Quarter: 2013Q1

REPORT INFORMATION
  Report Type: Spontaneous
  Country: JP (occurrence: JP)
  Receive Date: 20130102
  Receipt Date: 20130304
  Transmission Date: 20140127
  Serious: Yes (Hospitalization)
  Sender: FDA-Public Use
  Company Number: JP-ASTRAZENECA-2012SE96202

PATIENT
  Age: 51 Day
  Sex: Female
  Weight: 3.3 kg

DRUGS (4)
  1. SYNAGIS [Suspect]
     Indication: ANTIVIRAL PROPHYLAXIS
     Route: 030
     Dates: start: 20121120, end: 20121120
  2. SYNAGIS [Suspect]
     Indication: ANTIVIRAL PROPHYLAXIS
     Dosage: 0.4 ML
     Route: 030
     Dates: start: 20121218, end: 20121218
  3. SYNAGIS [Suspect]
     Indication: ANTIVIRAL PROPHYLAXIS
     Dosage: 0.7 ML
     Route: 030
     Dates: start: 20130122, end: 20130122
  4. SYNAGIS [Suspect]
     Indication: ANTIVIRAL PROPHYLAXIS
     Dosage: 0.8 ML
     Route: 030
     Dates: start: 20130219

REACTIONS (2)
  - Tonic convulsion [Recovered/Resolved]
  - Respiratory depression [Recovered/Resolved]
